FAERS Safety Report 22212765 (Version 1)
Quarter: 2023Q2

REPORT INFORMATION
  Report Type: Spontaneous
  Country: UA (occurrence: UA)
  Receive Date: 20230414
  Receipt Date: 20230414
  Transmission Date: 20230721
  Serious: Yes (Death)
  Sender: FDA-Public Use
  Company Number: UA-MYLANLABS-2023M1039682

PATIENT
  Age: 53 Year
  Sex: Male

DRUGS (4)
  1. PRETOMANID [Suspect]
     Active Substance: PRETOMANID
     Indication: Pulmonary tuberculosis
     Dosage: 200 MILLIGRAM, QD
     Route: 048
     Dates: start: 20230216, end: 20230305
  2. LIZOMAC [Concomitant]
     Indication: Pulmonary tuberculosis
     Dosage: 600 MILLIGRAM, QD (7/7 WEEK(S))
     Route: 065
     Dates: start: 20230216, end: 20230220
  3. MOXIFLOXACIN [Concomitant]
     Active Substance: MOXIFLOXACIN
     Indication: Pulmonary tuberculosis
     Dosage: 400 MILLIGRAM, QD (7/7 WEEK(S))
     Route: 065
     Dates: start: 20230216, end: 20230220
  4. SIRTURO [Concomitant]
     Active Substance: BEDAQUILINE FUMARATE
     Indication: Pulmonary tuberculosis
     Dosage: 400 MILLIGRAM, QD  (7/7 WEEK(S))
     Route: 065
     Dates: start: 20230216, end: 20230220

REACTIONS (1)
  - Peritonitis [Fatal]

NARRATIVE: CASE EVENT DATE: 20230305
